FAERS Safety Report 10398667 (Version 1)
Quarter: 2014Q3

REPORT INFORMATION
  Report Type: Spontaneous
  Country: NO (occurrence: NO)
  Receive Date: 20140821
  Receipt Date: 20140821
  Transmission Date: 20150326
  Serious: Yes (Death)
  Sender: FDA-Public Use
  Company Number: NO-ROCHE-1452429

PATIENT
  Age: 60 Year
  Sex: Male

DRUGS (2)
  1. TRANDATE [Concomitant]
     Active Substance: LABETALOL HYDROCHLORIDE
  2. ACTILYSE [Suspect]
     Active Substance: ALTEPLASE
     Indication: CEREBRAL INFARCTION
     Route: 042
     Dates: start: 20140731, end: 20140731

REACTIONS (2)
  - Brain death [Fatal]
  - Cerebral haemorrhage [Fatal]

NARRATIVE: CASE EVENT DATE: 20140731
